FAERS Safety Report 5364502-6 (Version None)
Quarter: 2007Q2

REPORT INFORMATION
  Report Type: 
  Country: None (occurrence: None)
  Receive Date: 20070530
  Receipt Date: 20070116
  Transmission Date: 20071010
  Serious: No
  Sender: FDA-Public Use
  Company Number: 2007PV028546

PATIENT
  Age: 67 Year
  Sex: Male
  Weight: 98.4306 kg

DRUGS (2)
  1. BYETTA [Suspect]
     Indication: DIABETES MELLITUS NON-INSULIN-DEPENDENT
     Dosage: 5 MCG BID SC
     Route: 058
     Dates: start: 20061201
  2. HUMULIN 70/30 [Concomitant]

REACTIONS (4)
  - CONSTIPATION [None]
  - DECREASED APPETITE [None]
  - NAUSEA [None]
  - VITREOUS FLOATERS [None]
